FAERS Safety Report 10543457 (Version 2)
Quarter: 2014Q4

REPORT INFORMATION
  Report Type: Spontaneous
  Country: US (occurrence: None)
  Receive Date: 20141010
  Receipt Date: 20141205
  Transmission Date: 20150529
  Serious: No
  Sender: FDA-Public Use
  Company Number: 163-POMAL-14071251

PATIENT
  Age: 71 Year
  Sex: Female
  Weight: 64.86 kg

DRUGS (23)
  1. TAMIFLU (OSELTAMIVIR) [Concomitant]
  2. VESICARE [Concomitant]
     Active Substance: SOLIFENACIN SUCCINATE
  3. ZOMETA [Concomitant]
     Active Substance: ZOLEDRONIC ACID
  4. ZOLOFT [Concomitant]
     Active Substance: SERTRALINE HYDROCHLORIDE
  5. ACYCLOVIR (ACICLOVIR) (ACICLOVIR) [Concomitant]
     Active Substance: ACYCLOVIR
  6. SYNTHROID [Concomitant]
     Active Substance: LEVOTHYROXINE SODIUM
  7. PROTONIX (PANTOPRAZOLE) [Concomitant]
  8. ADRIAMYCIN (DOXORUBICIN) [Concomitant]
  9. INVANZ [Concomitant]
     Active Substance: ERTAPENEM SODIUM
  10. VELCADE [Concomitant]
     Active Substance: BORTEZOMIB
  11. DEXILANT DR (DEXLANSOPRAZOLE) [Concomitant]
  12. POTASSIUM [Concomitant]
     Active Substance: POTASSIUM
  13. CISPLATIN. [Concomitant]
     Active Substance: CISPLATIN
  14. FLUCONAZOLE. [Concomitant]
     Active Substance: FLUCONAZOLE
  15. GABAPENTIN. [Concomitant]
     Active Substance: GABAPENTIN
  16. MIDODRINE [Concomitant]
     Active Substance: MIDODRINE
  17. ZOFRAN (ONDANSETRON HYDROCHLORIDE) [Concomitant]
  18. VYTORIN (INEGY) [Concomitant]
  19. AMINO ACID (ORNITHINE) [Concomitant]
  20. DEXAMETHASONE. [Concomitant]
     Active Substance: DEXAMETHASONE
  21. TRICOR [Concomitant]
     Active Substance: FENOFIBRATE
  22. POMALYST [Suspect]
     Active Substance: POMALIDOMIDE
     Indication: PLASMA CELL MYELOMA
     Dosage: 4 MG, 21 IN 21 D, PO
     Route: 048
     Dates: start: 20140613
  23. FLUDROCORTISONE [Concomitant]
     Active Substance: FLUDROCORTISONE

REACTIONS (5)
  - Blood cholesterol increased [None]
  - Insomnia [None]
  - Balance disorder [None]
  - Vertigo [None]
  - Neuropathy peripheral [None]

NARRATIVE: CASE EVENT DATE: 2014
